FAERS Safety Report 12765610 (Version 1)
Quarter: 2016Q3

REPORT INFORMATION
  Report Type: Spontaneous
  Country: US (occurrence: US)
  Receive Date: 20160921
  Receipt Date: 20160921
  Transmission Date: 20161109
  Serious: Yes (Other)
  Sender: FDA-Public Use
  Company Number: US-MYLANLABS-2016M1040264

PATIENT

DRUGS (4)
  1. VINCRISTINE [Suspect]
     Active Substance: VINCRISTINE
     Indication: HISTIOCYTIC SARCOMA
     Dosage: 1.4 MG/M2, BIWEEKLY
     Route: 042
  2. METHOTREXATE. [Suspect]
     Active Substance: METHOTREXATE
     Indication: HISTIOCYTIC SARCOMA
     Dosage: 3.5 GM/M2, EVERY 14 DAYS
     Route: 042
  3. DEXAMETHASONE. [Suspect]
     Active Substance: DEXAMETHASONE
     Indication: HISTIOCYTIC SARCOMA
     Route: 065
  4. PROCARBAZINE [Suspect]
     Active Substance: PROCARBAZINE
     Indication: HISTIOCYTIC SARCOMA
     Dosage: MONTHLY, 100 MG/M2, ON DAYS 2-8
     Route: 042

REACTIONS (3)
  - Ascites [Unknown]
  - Neuropathy peripheral [Unknown]
  - Thrombocytopenia [Unknown]
